FAERS Safety Report 21140206 (Version 4)
Quarter: 2022Q3

REPORT INFORMATION
  Report Type: Spontaneous
  Country: SE (occurrence: SE)
  Receive Date: 20220728
  Receipt Date: 20220905
  Transmission Date: 20221027
  Serious: Yes (Death, Hospitalization, Other)
  Sender: FDA-Public Use
  Company Number: SE-MPA-2022-017506

PATIENT
  Age: 76 Year
  Sex: Male

DRUGS (26)
  1. ELIQUIS [Suspect]
     Active Substance: APIXABAN
     Indication: Pulmonary embolism
     Dosage: 5 MG DAILY
     Route: 065
     Dates: start: 2019
  2. ASPIRIN [Suspect]
     Active Substance: ASPIRIN
     Indication: Coronary artery disease
     Dosage: UNK
     Route: 065
     Dates: start: 202205
  3. ASPIRIN [Suspect]
     Active Substance: ASPIRIN
     Indication: Coronary artery disease
     Route: 065
     Dates: start: 20220520
  4. MOVICOL [Concomitant]
     Active Substance: POLYETHYLENE GLYCOL 3350\POTASSIUM CHLORIDE\SODIUM BICARBONATE\SODIUM CHLORIDE
     Indication: Product used for unknown indication
     Dosage: POWDER FOR ORAL SOLUTION IN SACHET, 1 SACHET 1-2 TIMES DAILY IF NEEDED
     Route: 048
  5. ERYTHROPOIETIN [Concomitant]
     Active Substance: ERYTHROPOIETIN
     Indication: Product used for unknown indication
     Route: 065
  6. TOLAK [FLUOROURACIL SODIUM] [Concomitant]
     Indication: Product used for unknown indication
     Route: 065
  7. PROPIOMAZINE [Concomitant]
     Active Substance: PROPIOMAZINE
     Indication: Product used for unknown indication
     Route: 065
  8. ESOMEPRAZOLE [Concomitant]
     Active Substance: ESOMEPRAZOLE
     Indication: Product used for unknown indication
     Route: 065
  9. UREA [Concomitant]
     Active Substance: UREA
     Indication: Product used for unknown indication
     Route: 065
  10. LOKELMA [Concomitant]
     Active Substance: SODIUM ZIRCONIUM CYCLOSILICATE
     Indication: Product used for unknown indication
     Route: 048
  11. FUROSEMIDE [Concomitant]
     Active Substance: FUROSEMIDE
     Indication: Product used for unknown indication
     Dosage: 1-2 TABLETS IF NECESSARY, NO MORE THAN 2 TABLETS PER DAY
     Route: 065
     Dates: start: 20210114
  12. NEVANAC [Concomitant]
     Active Substance: NEPAFENAC
     Indication: Product used for unknown indication
     Route: 065
  13. ATORVASTATIN [Concomitant]
     Active Substance: ATORVASTATIN
     Indication: Product used for unknown indication
  14. ISOPTO-MAXIDEX [Concomitant]
     Indication: Product used for unknown indication
     Route: 065
  15. ZOLPIDEM [Concomitant]
     Active Substance: ZOLPIDEM TARTRATE
     Indication: Product used for unknown indication
     Dosage: 1-2 TABLET AT 10PM IF NECESSARY
     Route: 065
     Dates: start: 20220520
  16. FOLVIDON [Concomitant]
     Indication: Product used for unknown indication
  17. ALFACALCIDOL ORIFARM [Concomitant]
     Indication: Product used for unknown indication
     Route: 065
  18. INSTILLAGEL [Concomitant]
     Active Substance: CHLORHEXIDINE GLUCONATE\LIDOCAINE HYDROCHLORIDE
     Indication: Product used for unknown indication
     Route: 065
  19. SODIUM BICARBONATE [Concomitant]
     Active Substance: SODIUM BICARBONATE
     Indication: Product used for unknown indication
     Route: 065
  20. ALLOPURINOL [Concomitant]
     Active Substance: ALLOPURINOL
     Indication: Product used for unknown indication
     Route: 065
  21. BISOPROLOL [Concomitant]
     Active Substance: BISOPROLOL
     Indication: Product used for unknown indication
     Route: 065
  22. OXYCODONE [Concomitant]
     Active Substance: OXYCODONE
     Indication: Product used for unknown indication
     Dosage: DEPOT
     Route: 065
  23. HYDROXYUREA [Concomitant]
     Active Substance: HYDROXYUREA
     Indication: Product used for unknown indication
     Route: 065
  24. OXAZEPAM [Concomitant]
     Active Substance: OXAZEPAM
     Dosage: 1 TABLET IF NECESSARY, MAXIMUM 2 TABLETS PER DAY
     Route: 065
     Dates: start: 20210114
  25. OXAZEPAM [Concomitant]
     Active Substance: OXAZEPAM
     Indication: Product used for unknown indication
  26. ACETAMINOPHEN [Concomitant]
     Active Substance: ACETAMINOPHEN
     Indication: Product used for unknown indication
     Dosage: 1-2 TABLETS AS NEEDED, NO MORE THAN 8 TABLETS PER DAY
     Route: 065
     Dates: start: 20210114

REACTIONS (1)
  - Cerebral haemorrhage [Fatal]

NARRATIVE: CASE EVENT DATE: 20220715
